FAERS Safety Report 10360713 (Version 2)
Quarter: 2014Q3

REPORT INFORMATION
  Report Type: Report from Study
  Country: US (occurrence: US)
  Receive Date: 20140804
  Receipt Date: 20140926
  Transmission Date: 20150326
  Serious: No
  Sender: FDA-Public Use
  Company Number: US-ONYX-2014-1643

PATIENT
  Age: 75 Year
  Sex: Female
  Weight: 52.12 kg

DRUGS (2)
  1. PANOBINOSTAT [Concomitant]
     Active Substance: PANOBINOSTAT
     Route: 048
     Dates: start: 20121112, end: 20140719
  2. CARFILZOMIB [Suspect]
     Active Substance: CARFILZOMIB
     Indication: PLASMA CELL MYELOMA
     Route: 042
     Dates: start: 20121112, end: 20140715

REACTIONS (1)
  - Tremor [Recovered/Resolved]

NARRATIVE: CASE EVENT DATE: 20140728
